FAERS Safety Report 10152007 (Version 1)
Quarter: 2014Q2

REPORT INFORMATION
  Report Type: Spontaneous
  Country: US (occurrence: US)
  Receive Date: 20140505
  Receipt Date: 20140505
  Transmission Date: 20141212
  Serious: Yes (Other)
  Sender: FDA-Public Use
  Company Number: US-TEVA-396523USA

PATIENT
  Sex: Female

DRUGS (1)
  1. CEFALEXIN [Suspect]
     Indication: PROPHYLAXIS
     Route: 048

REACTIONS (1)
  - Urinary tract infection [Unknown]
